FAERS Safety Report 10430429 (Version 1)
Quarter: 2014Q3

REPORT INFORMATION
  Report Type: Other
  Country: IT (occurrence: IT)
  Receive Date: 20140904
  Receipt Date: 20140904
  Transmission Date: 20150326
  Serious: Yes (Other)
  Sender: FDA-Public Use
  Company Number: IT-MYLAN-2014M1002644

PATIENT

DRUGS (1)
  1. CLOPIDOGREL [Suspect]
     Active Substance: CLOPIDOGREL BISULFATE
     Indication: INFARCTION
     Route: 048

REACTIONS (4)
  - Dyspnoea [Unknown]
  - Drug intolerance [Unknown]
  - Dermatitis allergic [Unknown]
  - Drug hypersensitivity [Unknown]
